FAERS Safety Report 13404958 (Version 5)
Quarter: 2020Q2

REPORT INFORMATION
  Report Type: Report from Study
  Country: None (occurrence: DE)
  Receive Date: 20170405
  Receipt Date: 20200601
  Transmission Date: 20200713
  Serious: Yes (Hospitalization, Other)
  Sender: FDA-Public Use
  Company Number: DE-ABBVIE-17P-062-1923483-00

PATIENT
  Sex: Female
  Weight: 123 kg

DRUGS (7)
  1. HUMIRA [Suspect]
     Active Substance: ADALIMUMAB
     Route: 058
  2. HUMIRA [Suspect]
     Active Substance: ADALIMUMAB
     Indication: CROHN^S DISEASE
     Route: 058
     Dates: start: 201703
  3. HUMIRA [Suspect]
     Active Substance: ADALIMUMAB
     Indication: CROHN^S DISEASE
     Route: 058
     Dates: start: 20141204, end: 201703
  4. LORANO PRO [Concomitant]
     Indication: SEASONAL ALLERGY
  5. OMEPRAZOL [Concomitant]
     Active Substance: OMEPRAZOLE
     Indication: HYPERCHLORHYDRIA
     Route: 048
  6. NOVALGIN [Concomitant]
     Indication: ANALGESIC THERAPY
     Route: 048
  7. NOVALGIN [Concomitant]
     Indication: CROHN^S DISEASE

REACTIONS (3)
  - Benign ovarian tumour [Recovered/Resolved]
  - Cervix carcinoma [Not Recovered/Not Resolved]
  - Depression [Not Recovered/Not Resolved]

NARRATIVE: CASE EVENT DATE: 2018
